FAERS Safety Report 7010151-3 (Version None)
Quarter: 2010Q3

REPORT INFORMATION
  Report Type: 
  Country: None (occurrence: None)
  Receive Date: 20100923
  Receipt Date: 20100915
  Transmission Date: 20110219
  Serious: Yes (Other)
  Sender: FDA-Public Use
  Company Number: US-PFIZER INC-2010117647

PATIENT
  Sex: Female
  Weight: 86 kg

DRUGS (2)
  1. XALATAN [Suspect]
     Indication: INTRAOCULAR PRESSURE INCREASED
     Dosage: ONE DROP IN EACH EYE IN MORNING
     Route: 047
     Dates: start: 20100201
  2. DORZOLAMIDE HYDROCHLORIDE AND TIMOLOL MALEATE [Suspect]
     Indication: INTRAOCULAR PRESSURE INCREASED
     Dosage: UNK, 1X/DAY
     Route: 047
     Dates: start: 20100401

REACTIONS (3)
  - EYE IRRITATION [None]
  - INTRAOCULAR PRESSURE INCREASED [None]
  - NASAL DISCOMFORT [None]
